FAERS Safety Report 24043388 (Version 1)
Quarter: 2024Q3

REPORT INFORMATION
  Report Type: Spontaneous
  Country: CN (occurrence: CN)
  Receive Date: 20240703
  Receipt Date: 20240703
  Transmission Date: 20241017
  Serious: Yes (Hospitalization, Other)
  Sender: NOVITIUM PHARMA
  Company Number: CN-NOVITIUMPHARMA-2024CNNVP01143

PATIENT
  Age: 19 Year
  Sex: Male

DRUGS (8)
  1. ACYCLOVIR [Suspect]
     Active Substance: ACYCLOVIR
     Indication: Urinary tract infection
  2. VANCOMYCIN [Concomitant]
     Active Substance: VANCOMYCIN
     Indication: Urinary tract infection
  3. MOXIFLOXACIN [Concomitant]
     Active Substance: MOXIFLOXACIN
     Indication: Urinary tract infection
  4. Imipenem/ cilastatin [Concomitant]
     Indication: Urinary tract infection
  5. SODIUM [Concomitant]
     Active Substance: SODIUM
     Indication: Urinary tract infection
  6. ARSENIC TRIOXIDE [Concomitant]
     Active Substance: ARSENIC TRIOXIDE
     Indication: Urinary tract infection
  7. TRETINOIN [Concomitant]
     Active Substance: TRETINOIN
     Indication: Urinary tract infection
  8. HYDROXYUREA [Concomitant]
     Active Substance: HYDROXYUREA
     Indication: Urinary tract infection

REACTIONS (1)
  - Hepatotoxicity [Unknown]
